FAERS Safety Report 6905906-7 (Version None)
Quarter: 2010Q3

REPORT INFORMATION
  Report Type: 
  Country: None (occurrence: None)
  Receive Date: 20100804
  Receipt Date: 20100727
  Transmission Date: 20110219
  Serious: Yes (Other)
  Sender: FDA-Public Use
  Company Number: ES-ROCHE-718015

PATIENT
  Age: 34 Year
  Sex: Female

DRUGS (2)
  1. XENICAL [Suspect]
     Indication: OBESITY
     Route: 048
     Dates: start: 20091201, end: 20100401
  2. DOXYCYCLINE HYCLATE [Suspect]
     Indication: PRODUCT USED FOR UNKNOWN INDICATION
     Dosage: DRUG: PRODERMA
     Route: 048
     Dates: start: 20100301, end: 20100401

REACTIONS (3)
  - BICYTOPENIA [None]
  - MACROCYTOSIS [None]
  - SPONTANEOUS HAEMATOMA [None]
